FAERS Safety Report 6298113-5 (Version None)
Quarter: 2009Q3

REPORT INFORMATION
  Report Type: 
  Country: None (occurrence: None)
  Receive Date: 20090805
  Receipt Date: 20090731
  Transmission Date: 20100115
  Serious: Yes (Death, Hospitalization, Other)
  Sender: FDA-Public Use
  Company Number: PHHY2009BR32135

PATIENT
  Sex: Female

DRUGS (6)
  1. DIOVAN HCT [Suspect]
     Indication: HYPERTENSION
     Dosage: 1 TABLET (160/12.5 MG) IN THE MORNING
     Dates: start: 20060101
  2. SUSTRATE [Concomitant]
     Indication: CARDIAC DISORDER
     Dosage: 1 DF, BID
     Route: 048
  3. SIMVASTATIN [Concomitant]
     Indication: CARDIAC DISORDER
     Dosage: 1 TBALET (20 MG ) AFTER DINNER
  4. CARVEDILOL [Concomitant]
     Indication: CARDIAC DISORDER
     Dosage: 1 TABLET (125 MG) DAILY
     Route: 048
     Dates: start: 20060101
  5. A.A.S. [Concomitant]
     Dosage: 1 TABLET AFTER LUNCH
     Route: 048
  6. ANCORON [Concomitant]
     Indication: CARDIAC DISORDER
     Dosage: 1 TABLET EVERY 12 HRS

REACTIONS (12)
  - ACUTE MYOCARDIAL INFARCTION [None]
  - BLOOD PRESSURE DECREASED [None]
  - CARDIAC DISORDER [None]
  - CARDIAC FAILURE [None]
  - CARDIAC PACEMAKER INSERTION [None]
  - CONFUSIONAL STATE [None]
  - FALL [None]
  - FEMORAL NECK FRACTURE [None]
  - HYPERTENSION [None]
  - OEDEMA [None]
  - SCAR [None]
  - SURGERY [None]
